FAERS Safety Report 4346509-0 (Version None)
Quarter: 2004Q2

REPORT INFORMATION
  Report Type: 
  Country: None (occurrence: None)
  Receive Date: 20040426
  Receipt Date: 20031008
  Transmission Date: 20050107
  Serious: No
  Sender: FDA-Public Use
  Company Number: US-BRISTOL-MYERS SQUIBB COMPANY-12405239

PATIENT
  Age: 61 Year

DRUGS (1)
  1. CARBOPLATIN [Suspect]
     Indication: METASTATIC CARCINOMA OF THE BLADDER
     Dates: start: 20030902, end: 20030930

REACTIONS (1)
  - ADVERSE DRUG REACTION [None]
